FAERS Safety Report 17453089 (Version 1)
Quarter: 2020Q1

REPORT INFORMATION
  Report Type: Spontaneous
  Country: IN (occurrence: IN)
  Receive Date: 20200224
  Receipt Date: 20200224
  Transmission Date: 20200409
  Serious: Yes (Other)
  Sender: FDA-Public Use
  Company Number: NVSC2020IN048861

PATIENT
  Age: 5 Year
  Sex: Male

DRUGS (9)
  1. MYCOPHENOLATE MOFETIL. [Suspect]
     Active Substance: MYCOPHENOLATE MOFETIL
     Indication: PROPHYLAXIS AGAINST GRAFT VERSUS HOST DISEASE
  2. BUSULFAN. [Suspect]
     Active Substance: BUSULFAN
     Indication: SURGICAL PRECONDITIONING
     Dosage: DAYS    3.2 MG/KG, DAILY IV FOR 4 DAYS(DAY-6 TO-3)
     Route: 065
  3. RITUXIMAB. [Suspect]
     Active Substance: RITUXIMAB
     Indication: SURGICAL PRECONDITIONING
     Dosage: 100 MG/M2, ON DAY 8
     Route: 042
  4. MYCOPHENOLATE MOFETIL. [Suspect]
     Active Substance: MYCOPHENOLATE MOFETIL
     Indication: IMMUNOSUPPRESSION
     Dosage: UNK
     Route: 065
  5. FLUDARABINE PHOSPHATE. [Suspect]
     Active Substance: FLUDARABINE PHOSPHATE
     Indication: SURGICAL PRECONDITIONING
     Dosage: 40 MG/M2, DAILY FOR 4 DAYS (DAY-6 TO -3)
     Route: 065
  6. HIDROXIUREA [Suspect]
     Active Substance: HYDROXYUREA
     Indication: IMMUNOSUPPRESSION
     Dosage: UNK
     Route: 065
  7. THIOTEPA. [Suspect]
     Active Substance: THIOTEPA
     Indication: SURGICAL PRECONDITIONING
     Dosage: 10 MG/KG, ON DAY 7
     Route: 065
  8. ANTITHYMOCYTE IMMUNOGLOBULIN (RABBIT) [Suspect]
     Active Substance: LAPINE T-LYMPHOCYTE IMMUNE GLOBULIN
     Indication: SURGICAL PRECONDITIONING
     Dosage: 1.5 MG/KG, DAILY FOR 3 DAYS (DAY-4 TO -2).
     Route: 065
  9. HIDROXIUREA [Suspect]
     Active Substance: HYDROXYUREA
     Indication: PROPHYLAXIS AGAINST GRAFT VERSUS HOST DISEASE

REACTIONS (2)
  - Graft versus host disease [Unknown]
  - Product use in unapproved indication [Unknown]
